FAERS Safety Report 6865684-7 (Version None)
Quarter: 2010Q3

REPORT INFORMATION
  Report Type: 
  Country: None (occurrence: None)
  Receive Date: 20100721
  Receipt Date: 20080428
  Transmission Date: 20110219
  Serious: No
  Sender: FDA-Public Use
  Company Number: US-PFIZER INC-2008038581

PATIENT
  Sex: Female

DRUGS (37)
  1. CHANTIX [Suspect]
     Indication: SMOKING CESSATION THERAPY
     Route: 048
     Dates: start: 20080426
  2. PROMETHAZINE W/ CODEINE [Concomitant]
  3. PSEUDOEPHEDRINE [Concomitant]
     Indication: NASAL CONGESTION
  4. PSEUDOEPHEDRINE [Concomitant]
  5. AZITHROMYCIN [Concomitant]
     Indication: EAR INFECTION
  6. AZITHROMYCIN [Concomitant]
  7. SEROQUEL [Concomitant]
  8. SEROQUEL [Concomitant]
  9. LIPITOR [Concomitant]
  10. LIPITOR [Concomitant]
  11. BACLOFEN [Concomitant]
  12. BACLOFEN [Concomitant]
  13. ACETAMINOPHEN AND HYDROCODONE BITARTRATE [Concomitant]
  14. ACETAMINOPHEN AND HYDROCODONE BITARTRATE [Concomitant]
  15. GABAPENTIN [Concomitant]
  16. GABAPENTIN [Concomitant]
  17. METFORMIN [Concomitant]
  18. METFORMIN [Concomitant]
  19. NAPROXEN [Concomitant]
  20. NAPROXEN [Concomitant]
  21. ZOLOFT [Concomitant]
  22. ZOLOFT [Concomitant]
  23. RESTORIL [Concomitant]
  24. RESTORIL [Concomitant]
  25. ACETYLSALICYLIC ACID [Concomitant]
  26. ACETYLSALICYLIC ACID [Concomitant]
  27. ACCUPRIL [Concomitant]
  28. ACCUPRIL [Concomitant]
  29. TOPICAL PRODUCTS FOR JOINT AND MUSCULAR PAIN [Concomitant]
     Indication: MUSCLE DISORDER
  30. TOPICAL PRODUCTS FOR JOINT AND MUSCULAR PAIN [Concomitant]
  31. ALBUTEROL [Concomitant]
  32. ALBUTEROL [Concomitant]
  33. ATROVENT [Concomitant]
  34. ATROVENT [Concomitant]
  35. PULMICORT [Concomitant]
  36. PULMICORT [Concomitant]
  37. HYDROCHLOROTHIAZIDE [Concomitant]
     Indication: BLOOD PRESSURE ABNORMAL

REACTIONS (1)
  - OEDEMA PERIPHERAL [None]
